FAERS Safety Report 9094260 (Version 1)
Quarter: 2013Q1

REPORT INFORMATION
  Report Type: Spontaneous
  Country: US (occurrence: None)
  Receive Date: 20130122
  Receipt Date: 20130122
  Transmission Date: 20140127
  Serious: Yes (Death)
  Sender: FDA-Public Use
  Company Number: 1552748

PATIENT
  Age: 23 Year
  Sex: Male

DRUGS (4)
  1. (DIAZEPAM) [Suspect]
     Dosage: NOT REPROTED,  UNKNOWN,  UNKNOWN?UNKNOWN
  2. (MORPHINE SULPHATE) [Suspect]
     Dosage: NOT REPROTED,  UNKNOWN,  UNKNOWN?UNKNOWN
  3. (ALPRAZOLAM) [Suspect]
     Dosage: NOT REPROTED,  UNKNOWN,  UNKNOWN?UNKNOWN
  4. (OXYCODONE) [Suspect]
     Dosage: NOT REPROTED,  UNKNOWN,  UNKNOWN?UNKNOWN

REACTIONS (2)
  - Completed suicide [None]
  - Toxicity to various agents [None]
